FAERS Safety Report 7931607-2 (Version None)
Quarter: 2011Q4

REPORT INFORMATION
  Report Type: 
  Country: None (occurrence: None)
  Receive Date: 20111121
  Receipt Date: 20111108
  Transmission Date: 20120403
  Serious: Yes (Hospitalization)
  Sender: FDA-Public Use
  Company Number: PHHY2011US33475

PATIENT
  Sex: Female

DRUGS (2)
  1. GLEEVEC [Suspect]
     Indication: CHRONIC MYELOID LEUKAEMIA
     Dosage: 400 MG, DAILY
     Route: 048
     Dates: start: 20110329
  2. PREDNISONE TAB [Concomitant]

REACTIONS (14)
  - CONTUSION [None]
  - FALL [None]
  - DIARRHOEA [None]
  - JOINT SWELLING [None]
  - RASH [None]
  - ABDOMINAL PAIN [None]
  - COLITIS [None]
  - WOUND [None]
  - FATIGUE [None]
  - DYSGEUSIA [None]
  - DRY MOUTH [None]
  - HAEMATOMA [None]
  - HYPERTENSION [None]
  - OEDEMA PERIPHERAL [None]
